FAERS Safety Report 4449306-0 (Version None)
Quarter: 2004Q3

REPORT INFORMATION
  Report Type: 
  Country: None (occurrence: None)
  Receive Date: 20040913
  Receipt Date: 20040902
  Transmission Date: 20050211
  Serious: Yes (Hospitalization)
  Sender: FDA-Public Use
  Company Number: 2004230794US

PATIENT
  Age: 61 Year
  Sex: Male
  Weight: 96.2 kg

DRUGS (8)
  1. CAMPTOSAR [Suspect]
     Indication: GASTROOESOPHAGEAL CANCER
     Dosage: 125 MG/M2, D1 + 8 , EVERY 21 DAYS, IV
     Route: 042
     Dates: start: 20040510, end: 20040610
  2. COMPARATOR-PS341(PS341) INJECTION [Suspect]
     Indication: GASTROOESOPHAGEAL CANCER
     Dosage: 1.3 MG/M2, D1, 4,8,11, Q21 DAYS, IV
     Route: 042
     Dates: start: 20040510, end: 20040610
  3. GLIPIZIDE [Concomitant]
  4. LOPRESSOR [Concomitant]
  5. IMODIUM [Concomitant]
  6. PROMETHAZINE [Concomitant]
  7. PANTOPRAZOLE [Concomitant]
  8. LOMOTIL [Concomitant]

REACTIONS (4)
  - ATRIAL FIBRILLATION [None]
  - DIARRHOEA [None]
  - ELECTROLYTE IMBALANCE [None]
  - NEUTROPENIA [None]
